FAERS Safety Report 17549948 (Version 3)
Quarter: 2020Q2

REPORT INFORMATION
  Report Type: Spontaneous
  Country: US (occurrence: US)
  Receive Date: 20200317
  Receipt Date: 20200424
  Transmission Date: 20200713
  Serious: Yes (Other)
  Sender: FDA-Public Use
  Company Number: US-PFIZER INC-2020114911

PATIENT
  Age: 72 Year
  Sex: Female
  Weight: 89 kg

DRUGS (3)
  1. EFFEXOR XR [Suspect]
     Active Substance: VENLAFAXINE HYDROCHLORIDE
     Dosage: 75 MG, 1X/DAY
  2. EFFEXOR XR [Suspect]
     Active Substance: VENLAFAXINE HYDROCHLORIDE
     Dosage: 75 MG, 2X/DAY
  3. EFFEXOR XR [Suspect]
     Active Substance: VENLAFAXINE HYDROCHLORIDE
     Dosage: 75 MG, 3X/DAY

REACTIONS (7)
  - Drug ineffective [Unknown]
  - Pain [Unknown]
  - Suicidal ideation [Unknown]
  - Intentional product use issue [Unknown]
  - Feeling of despair [Unknown]
  - Anxiety [Unknown]
  - Depression [Unknown]
